FAERS Safety Report 15899913 (Version 2)
Quarter: 2019Q1

REPORT INFORMATION
  Report Type: Spontaneous
  Country: US (occurrence: US)
  Receive Date: 20190201
  Receipt Date: 20190306
  Transmission Date: 20190417
  Serious: Yes (Other)
  Sender: FDA-Public Use
  Company Number: US-BAUSCH-BL-2019-001567

PATIENT
  Age: 77 Year
  Sex: Female

DRUGS (3)
  1. LOSARTAN. [Concomitant]
     Active Substance: LOSARTAN
     Indication: PRODUCT USED FOR UNKNOWN INDICATION
  2. LATANOPROST OPHTHALMIC SOLUTION 0.005% [Suspect]
     Active Substance: LATANOPROST
     Indication: OCULAR HYPERTENSION
     Dosage: USED: FOR YEARS (EXACT DATE UNKNOWN), AT NIGHT IN THE LEFT EYE
     Route: 047
     Dates: end: 201901
  3. LATANOPROST OPHTHALMIC SOLUTION 0.005% [Suspect]
     Active Substance: LATANOPROST
     Dosage: AT NIGHT IN THE LEFT EYE
     Route: 047
     Dates: start: 20190113

REACTIONS (5)
  - Burning sensation [Recovered/Resolved]
  - Headache [Not Recovered/Not Resolved]
  - Cardiac flutter [Unknown]
  - Chest discomfort [Recovered/Resolved]
  - Product quality issue [Unknown]

NARRATIVE: CASE EVENT DATE: 20190113
